FAERS Safety Report 9066465 (Version 1)
Quarter: 2013Q1

REPORT INFORMATION
  Report Type: Report from Study
  Country: US (occurrence: US)
  Receive Date: 20130131
  Receipt Date: 20130131
  Transmission Date: 20140127
  Serious: No
  Sender: FDA-Public Use
  Company Number: US-ABBOTT-12P-163-1016504-00

PATIENT
  Age: 31 Year
  Sex: Female
  Weight: 59.02 kg

DRUGS (7)
  1. HUMIRA [Suspect]
     Indication: CROHN^S DISEASE
     Route: 050
     Dates: start: 20101214, end: 20110328
  2. PRENATAL VITAMINS [Concomitant]
     Indication: PRODUCT USED FOR UNKNOWN INDICATION
     Dosage: PILL
     Route: 048
     Dates: start: 20110130, end: 20110930
  3. VITAMIN D [Concomitant]
     Indication: PRODUCT USED FOR UNKNOWN INDICATION
     Route: 048
     Dates: start: 20110301, end: 20110528
  4. VITAMIN B12 [Concomitant]
     Indication: PRODUCT USED FOR UNKNOWN INDICATION
     Dosage: 1 SHOT TOTAL
     Route: 050
     Dates: start: 20101214, end: 20110509
  5. TYLENOL [Concomitant]
     Indication: HEADACHE
     Dosage: 1 PILL 4 TOTAL
     Route: 048
     Dates: start: 20101214, end: 20110404
  6. TYLENOL EXTRA STRENGTH [Concomitant]
     Indication: HEADACHE
     Dosage: 1 PILL
     Route: 048
     Dates: start: 20110405, end: 20110930
  7. RHOGAM [Concomitant]
     Indication: ABO INCOMPATIBILITY
     Dosage: 1 SHOT
     Route: 050
     Dates: start: 20110711, end: 20110711

REACTIONS (5)
  - Diarrhoea [Unknown]
  - Abdominal discomfort [Unknown]
  - Rectal haemorrhage [Recovered/Resolved]
  - Nasopharyngitis [Recovered/Resolved]
  - Hypersensitivity [Recovered/Resolved]
